FAERS Safety Report 9501307 (Version 1)
Quarter: 2013Q1

REPORT INFORMATION
  Report Type: Spontaneous
  Country: US (occurrence: None)
  Receive Date: 20130122
  Receipt Date: 20130122
  Transmission Date: 20140127
  Serious: Yes (Hospitalization)
  Sender: FDA-Public Use
  Company Number: 1177086

PATIENT
  Age: 34 Year
  Sex: Female

DRUGS (1)
  1. VANCOMYCIN HCL [Suspect]
     Indication: CELLULITIS
     Dates: start: 20120112, end: 20120118

REACTIONS (2)
  - Blood creatinine increased [None]
  - Antibiotic level above therapeutic [None]
